FAERS Safety Report 9243438 (Version 5)
Quarter: 2018Q3

REPORT INFORMATION
  Report Type: Spontaneous
  Country: US (occurrence: US)
  Receive Date: 20130421
  Receipt Date: 20180905
  Transmission Date: 20181010
  Serious: Yes (Other)
  Sender: FDA-Public Use
  Company Number: US-ASTRAZENECA-2013SE24509

PATIENT
  Age: 843 Month
  Sex: Female
  Weight: 85.7 kg

DRUGS (16)
  1. CRESTOR [Suspect]
     Active Substance: ROSUVASTATIN CALCIUM
     Indication: BLOOD CHOLESTEROL INCREASED
     Route: 048
     Dates: start: 20180507, end: 20180510
  2. LISINOPRIL. [Suspect]
     Active Substance: LISINOPRIL
     Route: 048
  3. COQ10 [Concomitant]
     Active Substance: UBIDECARENONE
     Dosage: UNK
  4. ASSURED ASPIRIN NO ADDITIVES [Concomitant]
     Indication: EYE DISORDER
  5. CRESTOR [Suspect]
     Active Substance: ROSUVASTATIN CALCIUM
     Indication: HYPERCHOLESTEROLAEMIA
     Route: 048
     Dates: start: 2018, end: 2018
  6. VOLTAREN [Concomitant]
     Active Substance: DICLOFENAC SODIUM
  7. CRESTOR [Suspect]
     Active Substance: ROSUVASTATIN CALCIUM
     Indication: BLOOD CHOLESTEROL INCREASED
     Route: 048
     Dates: start: 2010, end: 2011
  8. CRESTOR [Suspect]
     Active Substance: ROSUVASTATIN CALCIUM
     Indication: BLOOD CHOLESTEROL INCREASED
     Route: 048
     Dates: start: 2018, end: 2018
  9. CRESTOR [Suspect]
     Active Substance: ROSUVASTATIN CALCIUM
     Indication: HYPERCHOLESTEROLAEMIA
     Route: 048
  10. CRESTOR [Suspect]
     Active Substance: ROSUVASTATIN CALCIUM
     Indication: HYPERCHOLESTEROLAEMIA
     Route: 048
     Dates: start: 20180507, end: 20180510
  11. METOPROLOL SUCCINATE. [Suspect]
     Active Substance: METOPROLOL SUCCINATE
     Route: 048
  12. FISH OIL [Concomitant]
     Active Substance: FISH OIL
     Indication: DRY EYE
  13. CRESTOR [Suspect]
     Active Substance: ROSUVASTATIN CALCIUM
     Indication: HYPERCHOLESTEROLAEMIA
     Route: 048
     Dates: start: 2010, end: 2011
  14. CRESTOR [Suspect]
     Active Substance: ROSUVASTATIN CALCIUM
     Indication: BLOOD CHOLESTEROL INCREASED
     Route: 048
  15. TRIAMCINOLONE ACETONIDE. [Concomitant]
     Active Substance: TRIAMCINOLONE ACETONIDE
  16. VITAMIN D3 [Concomitant]
     Active Substance: CHOLECALCIFEROL

REACTIONS (24)
  - Retinal haemorrhage [Recovered/Resolved]
  - Gastrooesophageal reflux disease [Unknown]
  - Arthritis [Unknown]
  - Hypoaesthesia oral [Unknown]
  - Blood cholesterol increased [Unknown]
  - Transient ischaemic attack [Unknown]
  - Gastrointestinal disorder [Unknown]
  - Aphthous ulcer [Unknown]
  - Myalgia [Unknown]
  - Vitamin D deficiency [Unknown]
  - Cough [Unknown]
  - Intentional product misuse [Unknown]
  - Pharyngeal oedema [Recovered/Resolved]
  - Gastric disorder [Unknown]
  - Rash [Unknown]
  - Muscle spasms [Unknown]
  - Blood pressure abnormal [Recovered/Resolved]
  - Musculoskeletal discomfort [Unknown]
  - Drug ineffective [Unknown]
  - Ulcer [Recovered/Resolved]
  - Dry eye [Unknown]
  - Weight increased [Unknown]
  - Abdominal discomfort [Unknown]
  - Drug hypersensitivity [Unknown]

NARRATIVE: CASE EVENT DATE: 201701
